FAERS Safety Report 21610766 (Version 1)
Quarter: 2022Q4

REPORT INFORMATION
  Report Type: Spontaneous
  Country: FR (occurrence: None)
  Receive Date: 20221117
  Receipt Date: 20221117
  Transmission Date: 20230113
  Serious: Yes (Other)
  Sender: FDA-Public Use
  Company Number: FR-ROCHE-3218795

PATIENT
  Sex: Female

DRUGS (4)
  1. AVASTIN [Suspect]
     Active Substance: BEVACIZUMAB
     Indication: Ovarian cancer stage I
     Dosage: FOR 22 CYCLES BUT
     Route: 042
     Dates: start: 202203
  2. CARBOPLATIN [Concomitant]
     Active Substance: CARBOPLATIN
     Dates: start: 20211011
  3. TAXOL [Concomitant]
     Active Substance: PACLITAXEL
     Dates: start: 20211011
  4. DOXORUBICIN HYDROCHLORIDE [Concomitant]
     Active Substance: DOXORUBICIN HYDROCHLORIDE
     Dosage: FOR 6 CYCLES
     Dates: start: 202208

REACTIONS (2)
  - Recurrent cancer [Unknown]
  - Small intestinal obstruction [Unknown]
